FAERS Safety Report 7446532-3 (Version None)
Quarter: 2011Q2

REPORT INFORMATION
  Report Type: 
  Country: None (occurrence: None)
  Receive Date: 20110429
  Receipt Date: 20110426
  Transmission Date: 20111010
  Serious: Yes (Death, Hospitalization)
  Sender: FDA-Public Use
  Company Number: GB-PFIZER INC-2011082914

PATIENT
  Age: 57 Year
  Sex: Female

DRUGS (13)
  1. GEMTUZUMAB OZOGAMICIN [Suspect]
     Indication: MYELODYSPLASTIC SYNDROME
  2. AMBISOME [Concomitant]
     Dosage: UNK
     Dates: start: 20110411
  3. CIPROFLOXACIN HYDROCHLORIDE [Concomitant]
     Dosage: 400 MG, UNK
     Dates: start: 20110410
  4. TEICOPLANIN [Concomitant]
     Dosage: 400 MG, UNK
     Dates: start: 20110401
  5. GEMTUZUMAB OZOGAMICIN [Suspect]
     Indication: ACUTE MYELOID LEUKAEMIA
     Dosage: UNK
     Dates: start: 20110311, end: 20110320
  6. DAUNORUBICIN HCL [Suspect]
     Indication: MYELODYSPLASTIC SYNDROME
  7. CYTARABINE [Suspect]
     Indication: ACUTE MYELOID LEUKAEMIA
     Dosage: UNK
     Dates: start: 20110311, end: 20110320
  8. CYTARABINE [Suspect]
     Indication: MYELODYSPLASTIC SYNDROME
  9. DAUNORUBICIN HCL [Suspect]
     Indication: ACUTE MYELOID LEUKAEMIA
     Dosage: UNK
     Dates: start: 20110311, end: 20110320
  10. ETOPOSIDE [Suspect]
     Indication: ACUTE MYELOID LEUKAEMIA
     Dosage: UNK
     Dates: start: 20110311, end: 20110320
  11. GENTAMICIN [Concomitant]
     Dosage: 250 MG, UNK
  12. LORAZEPAM [Concomitant]
     Dosage: 1-2 MG
     Dates: start: 20110410
  13. ETOPOSIDE [Suspect]
     Indication: MYELODYSPLASTIC SYNDROME

REACTIONS (4)
  - BRONCHOPNEUMONIA [None]
  - ACUTE MYELOID LEUKAEMIA [None]
  - MYELODYSPLASTIC SYNDROME [None]
  - DISEASE PROGRESSION [None]
